FAERS Safety Report 9686391 (Version 1)
Quarter: 2013Q4

REPORT INFORMATION
  Report Type: Spontaneous
  Country: BR (occurrence: BR)
  Receive Date: 20131113
  Receipt Date: 20131113
  Transmission Date: 20140711
  Serious: Yes (Hospitalization)
  Sender: FDA-Public Use
  Company Number: BR-ASTRAZENECA-2013SE81989

PATIENT
  Age: 53 Year
  Sex: Female

DRUGS (10)
  1. BRILINTA [Suspect]
     Indication: MYOCARDIAL INFARCTION
     Route: 048
     Dates: start: 201302
  2. CONCOR [Concomitant]
     Indication: ANGINA PECTORIS
  3. CONCOR [Concomitant]
     Indication: TACHYCARDIA
  4. ASA [Concomitant]
     Indication: ANTICOAGULANT THERAPY
  5. FLUOXETINE [Concomitant]
     Indication: SENSATION OF PRESSURE
  6. DIAZEPAM [Concomitant]
     Indication: SEDATIVE THERAPY
  7. EMAMA [Concomitant]
     Indication: BREAST MASS
  8. PROSSO [Concomitant]
     Indication: BONE DISORDER
  9. ACETAMINOPHEN [Concomitant]
     Indication: HEADACHE
  10. TANDRILAX [Concomitant]
     Indication: HEADACHE

REACTIONS (8)
  - Myocardial infarction [Recovered/Resolved]
  - Cerebrovascular accident [Recovered/Resolved with Sequelae]
  - Memory impairment [Not Recovered/Not Resolved]
  - Weight decreased [Not Recovered/Not Resolved]
  - Chest pain [Recovering/Resolving]
  - Fatigue [Recovered/Resolved]
  - Dyspnoea [Recovered/Resolved]
  - Haematoma [Not Recovered/Not Resolved]
